FAERS Safety Report 11285790 (Version 3)
Quarter: 2015Q3

REPORT INFORMATION
  Report Type: Spontaneous
  Country: GB (occurrence: GB)
  Receive Date: 20150721
  Receipt Date: 20150805
  Transmission Date: 20151125
  Serious: Yes (Hospitalization, Other)
  Sender: FDA-Public Use
  Company Number: GB-AMGEN-GBRSP2015071572

PATIENT
  Age: 51 Year
  Sex: Female

DRUGS (6)
  1. 5-FU                               /00098801/ [Concomitant]
     Active Substance: FLUOROURACIL
     Indication: INVASIVE DUCTAL BREAST CARCINOMA
     Dosage: UNK
  2. TAXOTERE [Concomitant]
     Active Substance: DOCETAXEL
     Indication: INVASIVE DUCTAL BREAST CARCINOMA
     Dosage: UNK
  3. NEULASTA [Suspect]
     Active Substance: PEGFILGRASTIM
     Indication: PRODUCT USED FOR UNKNOWN INDICATION
     Dosage: 6 MG, UNK
     Route: 065
     Dates: end: 201507
  4. CYCLOPHOSPHAMIDE. [Concomitant]
     Active Substance: CYCLOPHOSPHAMIDE
     Indication: INVASIVE DUCTAL BREAST CARCINOMA
     Dosage: UNK
  5. HERCEPTIN [Concomitant]
     Active Substance: TRASTUZUMAB
     Indication: INVASIVE DUCTAL BREAST CARCINOMA
     Dosage: UNK
  6. EPIRUBICIN [Concomitant]
     Active Substance: EPIRUBICIN
     Indication: INVASIVE DUCTAL BREAST CARCINOMA
     Dosage: UNK

REACTIONS (7)
  - Anaphylactic reaction [Not Recovered/Not Resolved]
  - Periorbital oedema [Not Recovered/Not Resolved]
  - Dyspnoea [Not Recovered/Not Resolved]
  - Flushing [Unknown]
  - Rash generalised [Not Recovered/Not Resolved]
  - Rash [Not Recovered/Not Resolved]
  - Throat tightness [Unknown]

NARRATIVE: CASE EVENT DATE: 20150707
